FAERS Safety Report 26116885 (Version 1)
Quarter: 2025Q4

REPORT INFORMATION
  Report Type: Spontaneous
  Country: EU (occurrence: EU)
  Receive Date: 20251203
  Receipt Date: 20251203
  Transmission Date: 20260117
  Serious: Yes (Life-Threatening, Hospitalization, Disabling, Other)
  Sender: ACCORD
  Company Number: None

PATIENT
  Age: 77 Year
  Sex: Male
  Weight: 72 kg

DRUGS (4)
  1. CAPECITABINE [Suspect]
     Active Substance: CAPECITABINE
     Indication: Adjuvant therapy
     Dosage: 4-0-4
     Dates: start: 20250523, end: 20250530
  2. CARBIDOPA\LEVODOPA [Concomitant]
     Active Substance: CARBIDOPA\LEVODOPA
  3. ROPINIROLE [Concomitant]
     Active Substance: ROPINIROLE
  4. CAPECITABINE [Suspect]
     Active Substance: CAPECITABINE
     Indication: Adjuvant therapy
     Dosage: 1-0-1
     Dates: start: 20250523, end: 20250530

REACTIONS (6)
  - Mucosal inflammation [Recovering/Resolving]
  - Febrile neutropenia [Recovering/Resolving]
  - Neutropenia [Recovering/Resolving]
  - Anaemia [Recovering/Resolving]
  - Thrombocytopenia [Recovering/Resolving]
  - Delirium [Recovering/Resolving]

NARRATIVE: CASE EVENT DATE: 20250101
